FAERS Safety Report 11974872 (Version 1)
Quarter: 2016Q1

REPORT INFORMATION
  Report Type: Spontaneous
  Country: US (occurrence: US)
  Receive Date: 20160128
  Receipt Date: 20160128
  Transmission Date: 20160526
  Serious: No
  Sender: FDA-Public Use
  Company Number: US-OREXO US, INC.-ORE201510-000217

PATIENT
  Sex: Male
  Weight: 90.8 kg

DRUGS (3)
  1. ZUBSOLV [Suspect]
     Active Substance: BUPRENORPHINE HYDROCHLORIDE\NALOXONE HYDROCHLORIDE
     Indication: DRUG DEPENDENCE
     Dosage: 5.7MG/1.4MG
     Dates: start: 201503, end: 20151102
  2. XANAX [Concomitant]
     Active Substance: ALPRAZOLAM
     Indication: SLEEP DISORDER
  3. XANAX [Concomitant]
     Active Substance: ALPRAZOLAM
     Indication: MUSCLE SPASMS

REACTIONS (2)
  - Feeling abnormal [Not Recovered/Not Resolved]
  - Drug withdrawal syndrome [Unknown]
